FAERS Safety Report 4595572-0 (Version None)
Quarter: 2005Q1

REPORT INFORMATION
  Report Type: 
  Country: None (occurrence: None)
  Receive Date: 20050224
  Receipt Date: 20050203
  Transmission Date: 20050727
  Serious: Yes (Hospitalization)
  Sender: FDA-Public Use
  Company Number: CEL-2005-00194-ROC

PATIENT
  Sex: Female

DRUGS (3)
  1. DELSYM [Suspect]
     Dosage: 300 ML OVER FOUR DAYS PO
     Route: 048
     Dates: start: 20050130, end: 20050202
  2. ROBITUSSIN [Suspect]
     Dosage: PO
     Route: 048
     Dates: start: 20050130, end: 20050202
  3. ANTIDEPRESSANTS [Concomitant]

REACTIONS (4)
  - ABNORMAL BEHAVIOUR [None]
  - DISORIENTATION [None]
  - DYSARTHRIA [None]
  - OVERDOSE [None]
